FAERS Safety Report 8984153 (Version 2)
Quarter: 2013Q1

REPORT INFORMATION
  Report Type: Spontaneous
  Country: IT (occurrence: IT)
  Receive Date: 20121226
  Receipt Date: 20130122
  Transmission Date: 20140127
  Serious: Yes (Hospitalization)
  Sender: FDA-Public Use
  Company Number: IT-PFIZER INC-2012325635

PATIENT
  Age: 67 Year
  Sex: Male

DRUGS (5)
  1. RAPAMUNE [Suspect]
     Indication: TRANSPLANT REJECTION
     Dosage: 1 MG, 1X/DAY
     Route: 048
     Dates: start: 20120904, end: 20121101
  2. PANTOPRAZOLE SODIUM [Concomitant]
     Dosage: 40 MG, UNK
     Route: 048
  3. VORICONAZOLE [Concomitant]
     Dosage: 200 MG, UNK
     Route: 048
  4. ROCEFIN [Concomitant]
     Dosage: 2 G, UNK
     Route: 042
  5. LASIX [Concomitant]
     Dosage: 250 MG, UNK
     Route: 048

REACTIONS (5)
  - Polyneuropathy [Recovering/Resolving]
  - Ataxia [Recovering/Resolving]
  - Hypoaesthesia [Recovering/Resolving]
  - Visual acuity reduced [Recovering/Resolving]
  - Vibratory sense increased [Recovering/Resolving]
